FAERS Safety Report 7057368-X (Version None)
Quarter: 2010Q4

REPORT INFORMATION
  Report Type: 
  Country: None (occurrence: None)
  Receive Date: 20101022
  Receipt Date: 20101013
  Transmission Date: 20110411
  Serious: Yes (Other)
  Sender: FDA-Public Use
  Company Number: US-JNJFOC-20101003733

PATIENT
  Sex: Male
  Weight: 117.94 kg

DRUGS (6)
  1. REMICADE [Suspect]
     Indication: PSORIATIC ARTHROPATHY
     Dosage: 7 VIALS
     Route: 042
  2. REMICADE [Suspect]
     Route: 042
  3. ULTRAM [Concomitant]
     Indication: PAIN
  4. ACETAMINOPHEN [Concomitant]
     Indication: PAIN
  5. ATENOLOL [Concomitant]
     Indication: HYPERTENSION
  6. VITAMIN B-12 [Concomitant]
     Indication: NUTRITIONAL SUPPORT

REACTIONS (5)
  - ENDODONTIC PROCEDURE [None]
  - KNEE ARTHROPLASTY [None]
  - NEPHROLITHIASIS [None]
  - PAIN [None]
  - TOOTH ABSCESS [None]
